FAERS Safety Report 9437517 (Version 2)
Quarter: 2013Q3

REPORT INFORMATION
  Report Type: Spontaneous
  Country: US (occurrence: US)
  Receive Date: 20130802
  Receipt Date: 20130813
  Transmission Date: 20140515
  Serious: No
  Sender: FDA-Public Use
  Company Number: US-PFIZER INC-2013221557

PATIENT
  Age: 73 Year
  Sex: Female
  Weight: 70 kg

DRUGS (3)
  1. PRISTIQ [Suspect]
     Indication: DEPRESSION
     Dosage: 50 MG, 1X/DAY
     Route: 048
     Dates: start: 201307
  2. TOPROL [Concomitant]
     Dosage: UNK
  3. LIPITOR [Concomitant]
     Dosage: UNK

REACTIONS (1)
  - Urticaria [Recovered/Resolved]
